FAERS Safety Report 13569192 (Version 1)
Quarter: 2017Q2

REPORT INFORMATION
  Report Type: Other
  Country: BE (occurrence: BE)
  Receive Date: 20170522
  Receipt Date: 20170522
  Transmission Date: 20170830
  Serious: Yes (Life-Threatening, Hospitalization, Other)
  Sender: FDA-Public Use
  Company Number: BE-STASON PHARMACEUTICALS, INC.-2021048

PATIENT
  Age: 69 Year
  Sex: Male

DRUGS (1)
  1. ACYCLOVIR. [Suspect]
     Active Substance: ACYCLOVIR
     Indication: HERPES ZOSTER

REACTIONS (8)
  - Vascular encephalopathy [None]
  - Epilepsy [None]
  - Acute kidney injury [None]
  - Hyperkalaemia [None]
  - Dialysis [None]
  - Hyponatraemia [None]
  - Pneumonia aspiration [None]
  - Nephropathy toxic [None]
